FAERS Safety Report 5442317-8 (Version None)
Quarter: 2007Q3

REPORT INFORMATION
  Report Type: 
  Country: None (occurrence: None)
  Receive Date: 20070731
  Receipt Date: 20070613
  Transmission Date: 20080115
  Serious: No
  Sender: FDA-Public Use
  Company Number: US200706003245

PATIENT
  Age: 58 Year
  Sex: Female
  Weight: 77.1 kg

DRUGS (11)
  1. BYETTA [Suspect]
     Indication: TYPE 2 DIABETES MELLITUS
     Dosage: 5 UGM 2/D, SUBCUTANEOUS; 10 UG,2/D, SUBCUTANEOUS
     Route: 058
  2. EXENATIDE [Concomitant]
  3. GLUCOPHAGE/USA/(METFORMIN HYDROCHLORIDE) [Concomitant]
  4. LANTUS [Concomitant]
  5. NOVOLOG [Concomitant]
  6. DIGOXIN [Concomitant]
  7. PLAVIX [Concomitant]
  8. COREG [Concomitant]
  9. DIOVAN (HYDROCHLOROTHIAZIDE, VALSARTAN) [Concomitant]
  10. LASIX/USA/(FUROSEMIDE) [Concomitant]
  11. SPIRONOLACTONE [Concomitant]

REACTIONS (6)
  - BLOOD GLUCOSE DECREASED [None]
  - HYPERHIDROSIS [None]
  - MALAISE [None]
  - NASOPHARYNGITIS [None]
  - NAUSEA [None]
  - TREMOR [None]
